FAERS Safety Report 7716842-0 (Version None)
Quarter: 2011Q3

REPORT INFORMATION
  Report Type: 
  Country: None (occurrence: None)
  Receive Date: 20110829
  Receipt Date: 20110822
  Transmission Date: 20111222
  Serious: Yes (Hospitalization, Other)
  Sender: FDA-Public Use
  Company Number: US-BAYER-200941475NA

PATIENT
  Age: 45 Year
  Sex: Female
  Weight: 72 kg

DRUGS (6)
  1. YAZ [Suspect]
     Dosage: SAMPLES RECEIVED: 1 BOX ON 11-SEP-2008.
     Route: 048
     Dates: start: 20080901, end: 20090101
  2. AMOXICILLIN [Concomitant]
     Dates: start: 20090228
  3. DIURETICS [Concomitant]
  4. AMOXICILLIN [Concomitant]
     Dates: start: 20090228
  5. AMOXICILLIN [Concomitant]
     Dates: start: 20090308
  6. IBUPROFEN [Concomitant]
     Dosage: TABLET D
     Dates: start: 20090228

REACTIONS (6)
  - SPEECH DISORDER [None]
  - HEADACHE [None]
  - TREMOR [None]
  - PARAESTHESIA [None]
  - MEMORY IMPAIRMENT [None]
  - CEREBROVASCULAR ACCIDENT [None]
